FAERS Safety Report 9315083 (Version 3)
Quarter: 2013Q3

REPORT INFORMATION
  Report Type: Report from Study
  Country: FR (occurrence: FR)
  Receive Date: 20130529
  Receipt Date: 20130816
  Transmission Date: 20140515
  Serious: Yes (Life-Threatening, Hospitalization, Other)
  Sender: FDA-Public Use
  Company Number: FR-ROCHE-1229094

PATIENT
  Age: 50 Year
  Sex: Female
  Weight: 105 kg

DRUGS (7)
  1. TOCILIZUMAB [Suspect]
     Indication: RHEUMATOID ARTHRITIS
     Route: 042
     Dates: start: 20130405
  2. TOCILIZUMAB [Suspect]
     Route: 042
     Dates: start: 20130503, end: 20130505
  3. TRAMADOL [Concomitant]
     Indication: PAIN
     Route: 048
  4. ZOLPIDEM [Concomitant]
     Route: 048
  5. PARACETAMOL [Concomitant]
     Indication: PAIN
     Route: 048
  6. LORAZEPAM [Concomitant]
     Route: 048
  7. ACIDE NIFLUMIQUE [Concomitant]
     Indication: PAIN
     Route: 065

REACTIONS (3)
  - Urticaria [Recovered/Resolved]
  - Abscess limb [Recovering/Resolving]
  - Cellulitis [Recovering/Resolving]
